FAERS Safety Report 16359940 (Version 1)
Quarter: 2019Q2

REPORT INFORMATION
  Report Type: Spontaneous
  Country: JP (occurrence: JP)
  Receive Date: 20190528
  Receipt Date: 20190528
  Transmission Date: 20190711
  Serious: Yes (Other)
  Sender: FDA-Public Use
  Company Number: JP-PFIZER INC-2019213080

PATIENT
  Age: 3 Decade
  Sex: Male

DRUGS (2)
  1. EFFEXOR [Suspect]
     Active Substance: VENLAFAXINE HYDROCHLORIDE
     Indication: DEPRESSION
     Dosage: 150 MG, DAILY
     Dates: start: 2018
  2. AMOXAN [Concomitant]
     Active Substance: AMOXAPINE

REACTIONS (2)
  - Renal impairment [Unknown]
  - Blood creatinine increased [Unknown]
